FAERS Safety Report 7902460-8 (Version None)
Quarter: 2011Q4

REPORT INFORMATION
  Report Type: 
  Country: None (occurrence: None)
  Receive Date: 20111108
  Receipt Date: 20111102
  Transmission Date: 20120403
  Serious: Yes (Death, Other)
  Sender: FDA-Public Use
  Company Number: US-BAXTER-2010BH003718

PATIENT
  Age: 72 Year
  Sex: Male

DRUGS (122)
  1. HEPARIN SODIUM INJECTION [Suspect]
     Indication: HAEMODIALYSIS
     Route: 040
     Dates: start: 20080109, end: 20080111
  2. HEPARIN SODIUM INJECTION [Suspect]
     Indication: THROMBECTOMY
     Route: 040
     Dates: start: 20080109, end: 20080111
  3. HEPARIN SODIUM INJECTION [Suspect]
     Route: 058
     Dates: start: 20080117, end: 20080117
  4. HEPARIN SODIUM INJECTION [Suspect]
     Route: 058
     Dates: start: 20080117, end: 20080117
  5. HEPARIN SODIUM INJECTION [Suspect]
     Route: 058
     Dates: start: 20080117, end: 20080117
  6. HEPARIN SODIUM INJECTION [Suspect]
     Route: 042
     Dates: start: 20080116, end: 20080116
  7. HEPARIN SODIUM INJECTION [Suspect]
     Route: 042
     Dates: start: 20080130, end: 20080130
  8. HEPARIN SODIUM INJECTION [Suspect]
     Route: 042
     Dates: start: 20080116, end: 20080116
  9. HEPARIN SODIUM INJECTION [Suspect]
     Route: 042
     Dates: start: 20080131, end: 20080131
  10. HEPARIN SODIUM INJECTION [Suspect]
     Route: 040
     Dates: start: 20080129, end: 20080129
  11. HEPARIN SODIUM INJECTION [Suspect]
     Route: 040
     Dates: start: 20080130, end: 20080130
  12. HEPARIN SODIUM INJECTION [Suspect]
     Route: 040
     Dates: start: 20080131, end: 20080131
  13. LIDODERM [Concomitant]
     Indication: PRODUCT USED FOR UNKNOWN INDICATION
     Route: 061
  14. FUROSEMIDE [Concomitant]
     Indication: PRODUCT USED FOR UNKNOWN INDICATION
     Route: 048
  15. HEPARIN SODIUM INJECTION [Suspect]
     Indication: INTRAVENOUS CATHETER MANAGEMENT
     Route: 040
     Dates: start: 20080109, end: 20080111
  16. HEPARIN SODIUM INJECTION [Suspect]
     Route: 040
     Dates: start: 20080111, end: 20080205
  17. HEPARIN SODIUM INJECTION [Suspect]
     Route: 058
     Dates: start: 20080117, end: 20080117
  18. HEPARIN SODIUM INJECTION [Suspect]
     Route: 058
     Dates: start: 20080117, end: 20080117
  19. HEPARIN SODIUM INJECTION [Suspect]
     Route: 042
     Dates: start: 20080116, end: 20080116
  20. HEPARIN SODIUM INJECTION [Suspect]
     Route: 042
     Dates: start: 20080130, end: 20080130
  21. HEPARIN SODIUM INJECTION [Suspect]
     Route: 042
     Dates: start: 20080116, end: 20080116
  22. HEPARIN SODIUM INJECTION [Suspect]
     Route: 042
     Dates: start: 20080116, end: 20080116
  23. HEPARIN SODIUM INJECTION [Suspect]
     Route: 058
     Dates: start: 20080116, end: 20080117
  24. HEPARIN SODIUM INJECTION [Suspect]
     Route: 058
     Dates: start: 20080116, end: 20080117
  25. HEPARIN SODIUM INJECTION [Suspect]
     Route: 042
     Dates: start: 20080131, end: 20080131
  26. HEPARIN SODIUM INJECTION [Suspect]
     Route: 042
     Dates: start: 20080131, end: 20080131
  27. HEPARIN SODIUM INJECTION [Suspect]
     Route: 040
     Dates: start: 20080129, end: 20080129
  28. HEPARIN SODIUM INJECTION [Suspect]
     Route: 040
     Dates: start: 20080129, end: 20080129
  29. HEPARIN SODIUM INJECTION [Suspect]
     Route: 042
     Dates: start: 20080131, end: 20080131
  30. HEPARIN SODIUM INJECTION [Suspect]
     Route: 040
     Dates: start: 20080130, end: 20080130
  31. HEPARIN SODIUM INJECTION [Suspect]
     Route: 040
     Dates: start: 20080131, end: 20080131
  32. HEPARIN SODIUM INJECTION [Suspect]
     Route: 058
     Dates: start: 20080202, end: 20080205
  33. XOPENEX [Concomitant]
     Indication: PRODUCT USED FOR UNKNOWN INDICATION
     Route: 065
  34. HEPARIN SODIUM INJECTION [Suspect]
     Route: 058
     Dates: start: 20080117, end: 20080117
  35. HEPARIN SODIUM INJECTION [Suspect]
     Route: 042
     Dates: start: 20080115, end: 20080115
  36. HEPARIN SODIUM INJECTION [Suspect]
     Route: 058
     Dates: start: 20080117, end: 20080117
  37. HEPARIN SODIUM INJECTION [Suspect]
     Route: 058
     Dates: start: 20080117, end: 20080117
  38. HEPARIN SODIUM INJECTION [Suspect]
     Route: 058
     Dates: start: 20080204, end: 20080204
  39. HEPARIN SODIUM INJECTION [Suspect]
     Route: 040
     Dates: start: 20080131, end: 20080131
  40. HEPARIN SODIUM INJECTION [Suspect]
     Route: 040
     Dates: start: 20080131, end: 20080131
  41. HEPARIN SODIUM INJECTION [Suspect]
     Route: 040
     Dates: start: 20080131, end: 20080131
  42. HEPARIN SODIUM INJECTION [Suspect]
     Route: 040
     Dates: start: 20080131, end: 20080131
  43. HEPARIN SODIUM INJECTION [Suspect]
     Route: 040
     Dates: start: 20080131, end: 20080131
  44. HEPARIN SODIUM INJECTION [Suspect]
     Route: 040
     Dates: start: 20080131, end: 20080131
  45. PANTOPRAZOLE SODIUM [Concomitant]
     Indication: PRODUCT USED FOR UNKNOWN INDICATION
     Route: 065
  46. CODEINE W/GUAIFENESIN [Concomitant]
     Indication: PRODUCT USED FOR UNKNOWN INDICATION
     Route: 065
  47. HEPARIN SODIUM INJECTION [Suspect]
     Route: 058
     Dates: start: 20080117, end: 20080117
  48. HEPARIN SODIUM INJECTION [Suspect]
     Route: 042
     Dates: start: 20080114, end: 20080114
  49. HEPARIN SODIUM INJECTION [Suspect]
     Route: 042
     Dates: start: 20080114, end: 20080114
  50. HEPARIN SODIUM INJECTION [Suspect]
     Route: 058
     Dates: start: 20080117, end: 20080117
  51. HEPARIN SODIUM INJECTION [Suspect]
     Route: 058
     Dates: start: 20080117, end: 20080117
  52. HEPARIN SODIUM INJECTION [Suspect]
     Route: 058
     Dates: start: 20080117, end: 20080117
  53. HEPARIN SODIUM INJECTION [Suspect]
     Route: 042
     Dates: start: 20080115, end: 20080115
  54. HEPARIN SODIUM INJECTION [Suspect]
     Route: 042
     Dates: start: 20080116, end: 20080116
  55. HEPARIN SODIUM INJECTION [Suspect]
     Route: 042
     Dates: start: 20080130, end: 20080130
  56. HEPARIN SODIUM INJECTION [Suspect]
     Route: 058
     Dates: start: 20080204, end: 20080204
  57. HEPARIN SODIUM INJECTION [Suspect]
     Route: 058
     Dates: start: 20080116, end: 20080117
  58. HEPARIN SODIUM INJECTION [Suspect]
     Route: 058
     Dates: start: 20080116, end: 20080117
  59. HEPARIN SODIUM INJECTION [Suspect]
     Route: 058
     Dates: start: 20080116, end: 20080117
  60. HEPARIN SODIUM INJECTION [Suspect]
     Route: 040
     Dates: start: 20080129, end: 20080129
  61. HEPARIN SODIUM INJECTION [Suspect]
     Route: 042
     Dates: start: 20080131, end: 20080131
  62. HEPARIN SODIUM INJECTION [Suspect]
     Route: 040
     Dates: start: 20080130, end: 20080130
  63. HEPARIN SODIUM INJECTION [Suspect]
     Route: 040
     Dates: start: 20080130, end: 20080130
  64. HEPARIN SODIUM INJECTION [Suspect]
     Route: 040
     Dates: start: 20080131, end: 20080131
  65. HEPARIN SODIUM INJECTION [Suspect]
     Route: 058
     Dates: start: 20080202, end: 20080205
  66. HEPARIN SODIUM INJECTION [Suspect]
     Indication: ARTERIOVENOUS FISTULA OPERATION
     Route: 040
     Dates: start: 20080109, end: 20080111
  67. HEPARIN SODIUM INJECTION [Suspect]
     Indication: ATRIAL FIBRILLATION
     Route: 040
     Dates: start: 20080109, end: 20080111
  68. HEPARIN SODIUM INJECTION [Suspect]
     Route: 040
     Dates: start: 20080111, end: 20080205
  69. HEPARIN SODIUM INJECTION [Suspect]
     Route: 040
     Dates: start: 20080111, end: 20080205
  70. HEPARIN SODIUM INJECTION [Suspect]
     Route: 042
     Dates: start: 20080114, end: 20080114
  71. HEPARIN SODIUM INJECTION [Suspect]
     Route: 058
     Dates: start: 20080117, end: 20080117
  72. HEPARIN SODIUM INJECTION [Suspect]
     Route: 042
     Dates: start: 20080115, end: 20080115
  73. HEPARIN SODIUM INJECTION [Suspect]
     Route: 042
     Dates: start: 20080130, end: 20080130
  74. HEPARIN SODIUM INJECTION [Suspect]
     Route: 042
     Dates: start: 20080130, end: 20080130
  75. HEPARIN SODIUM INJECTION [Suspect]
     Route: 042
     Dates: start: 20080116, end: 20080116
  76. HEPARIN SODIUM INJECTION [Suspect]
     Route: 058
     Dates: start: 20080204, end: 20080204
  77. HEPARIN SODIUM INJECTION [Suspect]
     Route: 058
     Dates: start: 20080204, end: 20080204
  78. HEPARIN SODIUM INJECTION [Suspect]
     Route: 042
     Dates: start: 20080131, end: 20080131
  79. HEPARIN SODIUM INJECTION [Suspect]
     Route: 040
     Dates: start: 20080129, end: 20080129
  80. HEPARIN SODIUM INJECTION [Suspect]
     Route: 042
     Dates: start: 20080131, end: 20080131
  81. HEPARIN SODIUM INJECTION [Suspect]
     Route: 040
     Dates: start: 20080130, end: 20080130
  82. CALCIUM ACETATE [Concomitant]
     Indication: PRODUCT USED FOR UNKNOWN INDICATION
     Route: 065
  83. HEPARIN SODIUM 5,000 UNITS IN DEXTROSE 5% [Suspect]
     Indication: ATRIAL FIBRILLATION
     Route: 042
     Dates: start: 20080129, end: 20080201
  84. HEPARIN SODIUM INJECTION [Suspect]
     Route: 040
     Dates: start: 20080111, end: 20080205
  85. HEPARIN SODIUM INJECTION [Suspect]
     Route: 040
     Dates: start: 20080111, end: 20080205
  86. HEPARIN SODIUM INJECTION [Suspect]
     Route: 042
     Dates: start: 20080114, end: 20080114
  87. HEPARIN SODIUM INJECTION [Suspect]
     Route: 042
     Dates: start: 20080114, end: 20080114
  88. HEPARIN SODIUM INJECTION [Suspect]
     Route: 042
     Dates: start: 20080115, end: 20080115
  89. HEPARIN SODIUM INJECTION [Suspect]
     Route: 042
     Dates: start: 20080115, end: 20080115
  90. HEPARIN SODIUM INJECTION [Suspect]
     Route: 058
     Dates: start: 20080204, end: 20080204
  91. HEPARIN SODIUM INJECTION [Suspect]
     Route: 042
     Dates: start: 20080131, end: 20080131
  92. HEPARIN SODIUM INJECTION [Suspect]
     Route: 042
     Dates: start: 20080131, end: 20080131
  93. HEPARIN SODIUM INJECTION [Suspect]
     Route: 040
     Dates: start: 20080130, end: 20080130
  94. HEPARIN SODIUM INJECTION [Suspect]
     Route: 040
     Dates: start: 20080131, end: 20080131
  95. HEPARIN SODIUM INJECTION [Suspect]
     Route: 058
     Dates: start: 20080202, end: 20080205
  96. HEPARIN SODIUM INJECTION [Suspect]
     Route: 058
     Dates: start: 20080202, end: 20080205
  97. ZOLPIDEM [Concomitant]
     Indication: PRODUCT USED FOR UNKNOWN INDICATION
     Route: 048
  98. HEPARIN SODIUM INJECTION [Suspect]
     Route: 058
     Dates: start: 20080117, end: 20080117
  99. HEPARIN SODIUM INJECTION [Suspect]
     Route: 042
     Dates: start: 20080114, end: 20080114
  100. HEPARIN SODIUM INJECTION [Suspect]
     Route: 058
     Dates: start: 20080117, end: 20080117
  101. HEPARIN SODIUM INJECTION [Suspect]
     Route: 042
     Dates: start: 20080116, end: 20080116
  102. HEPARIN SODIUM INJECTION [Suspect]
     Route: 042
     Dates: start: 20080116, end: 20080116
  103. HEPARIN SODIUM INJECTION [Suspect]
     Route: 058
     Dates: start: 20080204, end: 20080204
  104. HEPARIN SODIUM INJECTION [Suspect]
     Route: 058
     Dates: start: 20080116, end: 20080117
  105. HEPARIN SODIUM INJECTION [Suspect]
     Route: 042
     Dates: start: 20080131, end: 20080131
  106. HEPARIN SODIUM INJECTION [Suspect]
     Route: 040
     Dates: start: 20080129, end: 20080129
  107. HEPARIN SODIUM INJECTION [Suspect]
     Route: 042
     Dates: start: 20080131, end: 20080131
  108. HEPARIN SODIUM INJECTION [Suspect]
     Route: 042
     Dates: start: 20080131, end: 20080131
  109. HEPARIN SODIUM INJECTION [Suspect]
     Route: 058
     Dates: start: 20080202, end: 20080205
  110. HEPARIN SODIUM INJECTION [Suspect]
     Route: 058
     Dates: start: 20080202, end: 20080205
  111. HEPARIN SODIUM INJECTION [Suspect]
     Indication: THROMBOSIS PROPHYLAXIS
     Route: 040
     Dates: start: 20080109, end: 20080111
  112. HEPARIN SODIUM INJECTION [Suspect]
     Route: 040
     Dates: start: 20080111, end: 20080205
  113. HEPARIN SODIUM INJECTION [Suspect]
     Route: 058
     Dates: start: 20080117, end: 20080117
  114. HEPARIN SODIUM INJECTION [Suspect]
     Route: 042
     Dates: start: 20080115, end: 20080115
  115. HEPARIN SODIUM INJECTION [Suspect]
     Route: 058
     Dates: start: 20080117, end: 20080117
  116. HEPARIN SODIUM INJECTION [Suspect]
     Route: 058
     Dates: start: 20080117, end: 20080117
  117. HEPARIN SODIUM INJECTION [Suspect]
     Route: 042
     Dates: start: 20080116, end: 20080116
  118. HEPARIN SODIUM INJECTION [Suspect]
     Route: 042
     Dates: start: 20080130, end: 20080130
  119. HEPARIN SODIUM INJECTION [Suspect]
     Route: 042
     Dates: start: 20080116, end: 20080116
  120. HEPARIN SODIUM INJECTION [Suspect]
     Route: 042
     Dates: start: 20080116, end: 20080116
  121. HEPARIN SODIUM INJECTION [Suspect]
     Route: 040
     Dates: start: 20080131, end: 20080131
  122. HEPARIN SODIUM INJECTION [Suspect]
     Route: 040
     Dates: start: 20080131, end: 20080131

REACTIONS (18)
  - ARTERIOVENOUS FISTULA THROMBOSIS [None]
  - CARDIO-RESPIRATORY ARREST [None]
  - PNEUMONIA [None]
  - NAUSEA [None]
  - MULTI-ORGAN FAILURE [None]
  - LACTIC ACIDOSIS [None]
  - HYPOTENSION [None]
  - HYPERKALAEMIA [None]
  - HEADACHE [None]
  - ATRIAL THROMBOSIS [None]
  - THROMBOCYTOPENIA [None]
  - HAEMATOCHEZIA [None]
  - HAEMORRHAGE [None]
  - MULTIPLE MYELOMA [None]
  - MITRAL VALVE INCOMPETENCE [None]
  - ISCHAEMIC HEPATITIS [None]
  - ERYTHEMA [None]
  - VOMITING [None]
